FAERS Safety Report 7030909-4 (Version None)
Quarter: 2010Q4

REPORT INFORMATION
  Report Type: 
  Country: None (occurrence: None)
  Receive Date: 20101006
  Receipt Date: 20100928
  Transmission Date: 20110411
  Serious: Yes (Hospitalization)
  Sender: FDA-Public Use
  Company Number: CH-BRISTOL-MYERS SQUIBB COMPANY-15309768

PATIENT
  Age: 56 Year
  Sex: Male

DRUGS (5)
  1. CETUXIMAB [Suspect]
     Indication: OESOPHAGEAL CARCINOMA
     Dosage: RECENT ADMINISTRATION:22SEP10
     Route: 042
     Dates: start: 20100903
  2. CISPLATIN [Suspect]
     Indication: OESOPHAGEAL CARCINOMA
     Dosage: RECENT ADMINISTRATION:22SEP10
     Route: 042
     Dates: start: 20100903
  3. DOCETAXEL [Suspect]
     Indication: OESOPHAGEAL CARCINOMA
     Dosage: RECENT ADMINISTRATION:22SEP10
     Route: 042
     Dates: start: 20100903
  4. OMEPRAZOLE [Concomitant]
     Route: 048
     Dates: start: 20100816
  5. BIOFLORIN [Concomitant]
     Dosage: 1 DF= 1 CAPSULE
     Route: 048

REACTIONS (7)
  - ABDOMINAL INFECTION [None]
  - DEVICE DISLOCATION [None]
  - DEVICE RELATED INFECTION [None]
  - SUBCLAVIAN VEIN THROMBOSIS [None]
  - THROMBOSIS IN DEVICE [None]
  - VENA CAVA THROMBOSIS [None]
  - VENOUS THROMBOSIS [None]
